FAERS Safety Report 5777539-X (Version None)
Quarter: 2008Q2

REPORT INFORMATION
  Report Type: 
  Country: None (occurrence: None)
  Receive Date: 20080618
  Receipt Date: 20080606
  Transmission Date: 20081010
  Serious: Yes (Hospitalization)
  Sender: FDA-Public Use
  Company Number: PL-PFIZER INC-2007043386

PATIENT
  Sex: Female
  Weight: 70 kg

DRUGS (12)
  1. SU-011,248 [Suspect]
     Indication: METASTATIC RENAL CELL CARCINOMA
     Route: 048
     Dates: start: 20060627, end: 20060903
  2. SU-011,248 [Suspect]
     Route: 048
     Dates: start: 20060918, end: 20070522
  3. ACENOCUMAROL [Concomitant]
     Route: 048
  4. METOPROLOL [Concomitant]
     Route: 048
  5. PREDUCTAL [Concomitant]
     Route: 048
  6. HYDROCHLOROTHIAZIDE [Concomitant]
     Route: 048
     Dates: start: 19970101, end: 20070528
  7. KALDYUM [Concomitant]
     Route: 048
     Dates: start: 19970701, end: 20070528
  8. CLOTRIMAZOLE [Concomitant]
     Route: 061
  9. PROTOZONE [Concomitant]
     Route: 061
  10. HYDROCORTISONE [Concomitant]
     Route: 061
  11. SOLCOSERYL [Concomitant]
     Route: 061
  12. RAMIPRIL [Concomitant]
     Route: 048
     Dates: start: 20051023, end: 20070528

REACTIONS (1)
  - RENAL FAILURE ACUTE [None]
